FAERS Safety Report 4388369-8 (Version None)
Quarter: 2004Q3

REPORT INFORMATION
  Report Type: 
  Country: None (occurrence: None)
  Receive Date: 20040701
  Receipt Date: 20040625
  Transmission Date: 20050211
  Serious: Yes (Hospitalization)
  Sender: FDA-Public Use
  Company Number: DE-MERCK-0406DEU00178

PATIENT

DRUGS (1)
  1. VIOXX [Suspect]
     Indication: JOINT DESTRUCTION
     Route: 048
     Dates: start: 20040312, end: 20040511

REACTIONS (1)
  - HEPATITIS C [None]
